FAERS Safety Report 5708514-9 (Version None)
Quarter: 2008Q2

REPORT INFORMATION
  Report Type: 
  Country: None (occurrence: None)
  Receive Date: 20080417
  Receipt Date: 20080124
  Transmission Date: 20081010
  Serious: No
  Sender: FDA-Public Use
  Company Number: US-BRISTOL-MYERS SQUIBB COMPANY-14053003

PATIENT

DRUGS (1)
  1. CARBOPLATIN [Suspect]
     Indication: NON-SMALL CELL LUNG CANCER
     Dosage: 1 DOSAGE FORM = 6 AREA UNDER CURVE. ALSO HAD 6AUC A WEEK AGO.
     Route: 042
     Dates: start: 20080123, end: 20080123

REACTIONS (1)
  - INCORRECT DOSE ADMINISTERED [None]
